FAERS Safety Report 14738907 (Version 5)
Quarter: 2018Q2

REPORT INFORMATION
  Report Type: Spontaneous
  Country: US (occurrence: US)
  Receive Date: 20180409
  Receipt Date: 20180620
  Transmission Date: 20180711
  Serious: Yes (Death, Hospitalization, Other)
  Sender: FDA-Public Use
  Company Number: US-BEH-2018089403

PATIENT
  Age: 59 Year
  Sex: Male
  Weight: 87.75 kg

DRUGS (16)
  1. ZEMAIRA [Suspect]
     Active Substance: .ALPHA.1-PROTEINASE INHIBITOR HUMAN
     Indication: ALPHA-1 ANTI-TRYPSIN DEFICIENCY
     Dosage: 60 MG/KG, QW
     Route: 042
     Dates: start: 20140219
  2. PREDNISONE. [Concomitant]
     Active Substance: PREDNISONE
  3. ZEMAIRA [Suspect]
     Active Substance: .ALPHA.1-PROTEINASE INHIBITOR HUMAN
     Dosage: 60 MG/KG, TOT
     Route: 042
  4. FLONASE [Concomitant]
     Active Substance: FLUTICASONE PROPIONATE
  5. AZITHROMYCIN ANHYDROUS. [Concomitant]
     Active Substance: AZITHROMYCIN ANHYDROUS
  6. BUDESONIDE. [Concomitant]
     Active Substance: BUDESONIDE
  7. DIPHENHYDRAMINE HCL [Concomitant]
     Active Substance: DIPHENHYDRAMINE HYDROCHLORIDE
  8. BROVANA [Concomitant]
     Active Substance: ARFORMOTEROL TARTRATE
  9. ALBUTEROL                          /00139501/ [Concomitant]
     Active Substance: ALBUTEROL
  10. WELLBUTRIN [Concomitant]
     Active Substance: BUPROPION HYDROCHLORIDE
  11. SODIUM CHLORIDE. [Concomitant]
     Active Substance: SODIUM CHLORIDE
  12. OXYGEN. [Concomitant]
     Active Substance: OXYGEN
  13. IPRATROPIUM [Concomitant]
     Active Substance: IPRATROPIUM
  14. CLONAZEPAM. [Concomitant]
     Active Substance: CLONAZEPAM
  15. LEVAQUIN [Concomitant]
     Active Substance: LEVOFLOXACIN
  16. EPINEPHRINE. [Concomitant]
     Active Substance: EPINEPHRINE

REACTIONS (1)
  - Lung transplant [Fatal]

NARRATIVE: CASE EVENT DATE: 20180326
